FAERS Safety Report 4773479-3 (Version None)
Quarter: 2005Q3

REPORT INFORMATION
  Report Type: 
  Country: None (occurrence: None)
  Receive Date: 20050920
  Receipt Date: 20050909
  Transmission Date: 20060218
  Serious: Yes (Other)
  Sender: FDA-Public Use
  Company Number: PHEH2005US10050

PATIENT
  Age: 78 Year
  Sex: Male

DRUGS (1)
  1. ZOMETA [Suspect]

REACTIONS (13)
  - ASEPTIC NECROSIS BONE [None]
  - BONE DISORDER [None]
  - BONE INFECTION [None]
  - BONE LESION [None]
  - GINGIVAL INFECTION [None]
  - GINGIVAL SWELLING [None]
  - GINGIVITIS [None]
  - LYMPHADENOPATHY [None]
  - ORAL PAIN [None]
  - OSTEOLYSIS [None]
  - OSTEOMYELITIS [None]
  - SOFT TISSUE INFECTION [None]
  - TOOTH EXTRACTION [None]
